FAERS Safety Report 24033599 (Version 2)
Quarter: 2024Q3

REPORT INFORMATION
  Report Type: Spontaneous
  Country: US (occurrence: US)
  Receive Date: 20240701
  Receipt Date: 20240704
  Transmission Date: 20241017
  Serious: Yes (Other)
  Sender: BAUSCH AND LOMB
  Company Number: US-BAUSCHBL-2024BNL029122

PATIENT
  Age: 2 Month
  Sex: Female

DRUGS (4)
  1. DEXAMETHASONE SODIUM PHOSPHATE [Suspect]
     Active Substance: DEXAMETHASONE PHOSPHATE\DEXAMETHASONE SODIUM PHOSPHATE
     Indication: Obstructive sleep apnoea syndrome
     Dosage: 2 DROPS IN EACH NOSTRIL ONCE DAILY
     Route: 045
     Dates: start: 20231025, end: 20240610
  2. DEXAMETHASONE SODIUM PHOSPHATE [Suspect]
     Active Substance: DEXAMETHASONE PHOSPHATE\DEXAMETHASONE SODIUM PHOSPHATE
     Indication: Product use in unapproved indication
  3. DEVICE [Suspect]
     Active Substance: DEVICE
     Indication: Obstructive sleep apnoea syndrome
     Route: 045
  4. DEVICE [Suspect]
     Active Substance: DEVICE
     Indication: Product use in unapproved indication

REACTIONS (4)
  - Cushing^s syndrome [Not Recovered/Not Resolved]
  - Product prescribing issue [Unknown]
  - Product use in unapproved indication [Unknown]
  - Product use issue [Unknown]

NARRATIVE: CASE EVENT DATE: 20231025
